FAERS Safety Report 10955707 (Version 1)
Quarter: 2015Q1

REPORT INFORMATION
  Report Type: Report from Study
  Country: US (occurrence: None)
  Receive Date: 20150324
  Receipt Date: 20150324
  Transmission Date: 20150721
  Serious: Yes (Hospitalization, Other)
  Sender: FDA-Public Use
  Company Number: 2014SGN01693

PATIENT
  Age: 75 Year
  Sex: Female

DRUGS (36)
  1. PREDNISONE (PREDNISONE) ORAL [Suspect]
     Active Substance: PREDNISONE
     Indication: DIFFUSE LARGE B-CELL LYMPHOMA
     Dosage: EVERY CYCLE
     Route: 048
     Dates: start: 20141117, end: 20141212
  2. NORMAL SALINE (SODIUM CHLORIDE) [Concomitant]
  3. PALONOSETRON (PALONOSETRON) [Concomitant]
  4. DOXORUBICIN (DOXORUBICIN) INJECTION [Suspect]
     Active Substance: DOXORUBICIN
     Indication: DIFFUSE LARGE B-CELL LYMPHOMA
     Dosage: EVERY 21 DAYS
     Route: 042
     Dates: start: 20141117, end: 20141208
  5. NEULASTA [Concomitant]
     Active Substance: PEGFILGRASTIM
  6. ONDANSETRON. [Concomitant]
     Active Substance: ONDANSETRON
  7. HYDROCODONE (HYDROCODONE) [Concomitant]
     Active Substance: HYDROCODONE
  8. PRAVASTATIN [Concomitant]
     Active Substance: PRAVASTATIN\PRAVASTATIN SODIUM
  9. FEXOFENADINE [Concomitant]
     Active Substance: FEXOFENADINE\FEXOFENADINE HYDROCHLORIDE
  10. PERCOCET /00446701/ (OXYCODONE HYDROCHLORIDE, OXYCODONE TEREPHTHALATE, PARACETAMOL) [Concomitant]
  11. LIDOCAINE HCL (LIDOCAINE HYDROCHLORIDE) [Concomitant]
  12. COLACE [Concomitant]
     Active Substance: DOCUSATE SODIUM
  13. FOSAPREPITANT (FOSAPREPITANT) [Concomitant]
  14. ALLOPURINOL (ALLOPURINOL) [Concomitant]
     Active Substance: ALLOPURINOL
  15. BACTRIM DS (SULFAMETHOXAZOLE, TRIMETHOPRIM) [Concomitant]
  16. SULFAZINE (SULFASALAZINE) [Concomitant]
  17. LEVOTHYROXINE (LEVOTHYROXINE) [Suspect]
     Active Substance: LEVOTHYROXINE
  18. VINCRISTINE (VINCRISTINE) INJECTION [Suspect]
     Active Substance: VINCRISTINE
     Indication: DIFFUSE LARGE B-CELL LYMPHOMA
     Dosage: EVERY 21 DAYS
     Route: 042
     Dates: start: 20141117, end: 20141208
  19. DIPHENHYDRAMIN (DIPHENHYDRAMINE HYDROCHLORIDE) [Concomitant]
  20. FLAXSEED OIL (LINUM USITATISSIMUM SEED OIL) [Concomitant]
  21. CARVEDILOL (CARVEDILOL) [Concomitant]
     Active Substance: CARVEDILOL
  22. OMEPRAZOLE (OMEPRAZOLE) [Concomitant]
     Active Substance: OMEPRAZOLE
  23. PROCHLORPERAZINE (PROCHLORPERAZINE) [Concomitant]
     Active Substance: PROCHLORPERAZINE
  24. MELOXICAM (MELOXICAM) [Concomitant]
     Active Substance: MELOXICAM
  25. DEXAMETHASONE SODIUM PHOSPHATE (DEXAMETHASONE SODIUM PHOSPHATE) [Concomitant]
     Active Substance: DEXAMETHASONE SODIUM PHOSPHATE
  26. TRAMADOL (TRAMADOL) [Concomitant]
     Active Substance: TRAMADOL
  27. BRENTUXIMAB VEDOTIN (BRENTUXIMAB VEDOTIN) INJECTION [Suspect]
     Active Substance: BRENTUXIMAB VEDOTIN
     Indication: DIFFUSE LARGE B-CELL LYMPHOMA
     Dosage: EVERY 21 DAYS
     Route: 042
     Dates: start: 20141117, end: 20141208
  28. CYCLOPHOSPHAMIDE (CYCLOPHOSPHAMIDE) INJECTION [Suspect]
     Active Substance: CYCLOPHOSPHAMIDE
     Indication: DIFFUSE LARGE B-CELL LYMPHOMA
     Dosage: EVERY 21 DAYS
     Route: 042
     Dates: start: 20141117, end: 20141208
  29. RITUXIMAB (RITUXIMAB) INJECTION [Suspect]
     Active Substance: RITUXIMAB
     Indication: DIFFUSE LARGE B-CELL LYMPHOMA
     Dosage: EVERY 21 DAYS
     Route: 042
     Dates: start: 20141117, end: 20141208
  30. LORAZEPAM (LORAZEPAM) [Concomitant]
     Active Substance: LORAZEPAM
  31. ACETAMINOPHEN (PARACETAMOL) [Concomitant]
     Active Substance: ACETAMINOPHEN
  32. EMLA /00675501/ (LIDOCAINE, PRILOCAINE) [Concomitant]
  33. CENTRUM [Concomitant]
     Active Substance: VITAMINS
  34. VITAMIN D /00107901/ (ERGOCALCIFEROL) [Concomitant]
  35. MIRTAZAPINE (MIRTAZAPINE) [Concomitant]
     Active Substance: MIRTAZAPINE
  36. FOLIC ACID (FOLIC ACID) [Concomitant]
     Active Substance: FOLIC ACID

REACTIONS (7)
  - Hiatus hernia [None]
  - Herpes zoster [None]
  - Febrile neutropenia [None]
  - Pulmonary oedema [None]
  - Pleural effusion [None]
  - Lower respiratory tract infection [None]
  - Acute respiratory failure [None]

NARRATIVE: CASE EVENT DATE: 20141214
